FAERS Safety Report 10109692 (Version 1)
Quarter: 2014Q2

REPORT INFORMATION
  Report Type: Spontaneous
  Country: IT (occurrence: None)
  Receive Date: 20140423
  Receipt Date: 20140423
  Transmission Date: 20141212
  Serious: Yes (Hospitalization)
  Sender: FDA-Public Use
  Company Number: FK201401378

PATIENT
  Age: 83 Year
  Sex: Female

DRUGS (12)
  1. POTASSIUM CHLORIDE 150 MG/ML (POTASSIUM CHLORIDE) [Suspect]
     Indication: VENTRICULAR ARRHYTHMIA
     Route: 042
     Dates: start: 20140329, end: 20140331
  2. MAGNESIO SOLFATO MONICO (MAGNESIUM SULFATE) [Suspect]
     Indication: VENTRICULAR ARRHYTHMIA
     Dates: start: 20140329, end: 20140331
  3. TRIATEC (RAMIPRIL) [Concomitant]
  4. PLAVIX (CLOPIDOGREL BISULFATE) (CLOPIDOGREL BISULFATE) [Concomitant]
  5. CLEXANE (ENOXAPARIN SODIUM) [Concomitant]
  6. LANTUS (INSULIN GLARGINE) [Concomitant]
  7. APIDRA (INDULIN GLULISINE) [Concomitant]
  8. PERIVEN (KABIVEN PI) [Concomitant]
  9. LEVOFLOXACIN (LEVOFLOXACIN) [Concomitant]
  10. MEPRAL (OMEPRAZOLE) [Concomitant]
  11. FLECTADOL (ACETYLSALICYLATE LYSINE) [Concomitant]
  12. CONGESCOR (BISOPROLOL FUMARATE) [Concomitant]

REACTIONS (4)
  - Erythema [None]
  - Rash [None]
  - Rash [None]
  - Rash macular [None]
